FAERS Safety Report 7993516-2 (Version None)
Quarter: 2011Q4

REPORT INFORMATION
  Report Type: 
  Country: None (occurrence: None)
  Receive Date: 20111219
  Receipt Date: 20111209
  Transmission Date: 20120403
  Serious: Yes (Hospitalization, Other)
  Sender: FDA-Public Use
  Company Number: BR-ASTRAZENECA-2011SE75032

PATIENT
  Age: 58 Year
  Sex: Male
  Weight: 98 kg

DRUGS (5)
  1. ENALAPRIL MALEATE [Concomitant]
     Route: 048
     Dates: start: 20110201
  2. ALDACTONE [Concomitant]
     Route: 048
     Dates: start: 20110201
  3. ATACAND HCT [Suspect]
     Indication: HYPERTENSION
     Dosage: 16+12.5 MG DAILY
     Route: 048
     Dates: start: 20110201
  4. LIPITOR [Concomitant]
     Route: 048
     Dates: start: 20110201
  5. VASTAREL [Suspect]
     Route: 048
     Dates: start: 20110201

REACTIONS (4)
  - CHEST PAIN [None]
  - CORONARY ARTERY DISEASE [None]
  - FATIGUE [None]
  - VENOUS OCCLUSION [None]
